FAERS Safety Report 6144219-0 (Version None)
Quarter: 2009Q2

REPORT INFORMATION
  Report Type: 
  Country: None (occurrence: None)
  Receive Date: 20090406
  Receipt Date: 20090331
  Transmission Date: 20091009
  Serious: Yes (Death)
  Sender: FDA-Public Use
  Company Number: PHHY2009AT12130

PATIENT
  Sex: Female

DRUGS (1)
  1. LAMPRENE [Suspect]
     Dosage: UNK
     Dates: start: 19980101

REACTIONS (1)
  - PULMONARY HYPERTENSION [None]
